FAERS Safety Report 9392415 (Version 1)
Quarter: 2013Q3

REPORT INFORMATION
  Report Type: Spontaneous
  Country: IT (occurrence: IT)
  Receive Date: 20130710
  Receipt Date: 20130710
  Transmission Date: 20140515
  Serious: Yes (Hospitalization)
  Sender: FDA-Public Use
  Company Number: IT-ACCORD-018452

PATIENT
  Age: 33 Year
  Sex: Female

DRUGS (1)
  1. GEMCITABINE [Suspect]
     Route: 055
     Dates: start: 20130430, end: 20130530

REACTIONS (4)
  - Cough [Recovering/Resolving]
  - Throat tightness [Recovering/Resolving]
  - Occupational exposure to product [Unknown]
  - Oropharyngeal pain [Recovering/Resolving]
